FAERS Safety Report 8987301 (Version 1)
Quarter: 2012Q4

REPORT INFORMATION
  Report Type: 
  Country: CH (occurrence: CH)
  Receive Date: 20121226
  Receipt Date: 20121226
  Transmission Date: 20130627
  Serious: Yes (Hospitalization, Other)
  Sender: FDA-Public Use
  Company Number: CH-ROCHE-1173240

PATIENT
  Age: 74 Year
  Sex: Female

DRUGS (5)
  1. AVASTIN [Suspect]
     Indication: BREAST CANCER
     Route: 042
     Dates: start: 20120920, end: 20121108
  2. XELODA [Suspect]
     Indication: BREAST CANCER
     Route: 048
     Dates: start: 20120920, end: 20121108
  3. ENDOXAN [Suspect]
     Indication: BREAST CANCER
     Route: 065
     Dates: start: 20120920, end: 20121108
  4. TAXOL [Suspect]
     Indication: BREAST CANCER
     Route: 042
     Dates: start: 20121115, end: 20121129
  5. MST [Concomitant]
     Route: 048

REACTIONS (3)
  - Febrile neutropenia [Recovered/Resolved]
  - Pyrexia [Recovered/Resolved]
  - Pulmonary embolism [Recovered/Resolved]
